FAERS Safety Report 5649187-3 (Version None)
Quarter: 2008Q1

REPORT INFORMATION
  Report Type: 
  Country: None (occurrence: None)
  Receive Date: 20080131
  Receipt Date: 20071101
  Transmission Date: 20080703
  Serious: No
  Sender: FDA-Public Use
  Company Number: US200709006289

PATIENT
  Age: 31 Year
  Sex: Female

DRUGS (4)
  1. BYETTA [Suspect]
     Indication: TYPE 2 DIABETES MELLITUS
     Dosage: 10 UG, 2/D
     Dates: start: 20070622
  2. ACTOS [Concomitant]
  3. METFORMIN HCL [Concomitant]
  4. AMARYL [Concomitant]

REACTIONS (1)
  - HEPATIC ENZYME INCREASED [None]
